FAERS Safety Report 18244424 (Version 3)
Quarter: 2020Q4

REPORT INFORMATION
  Report Type: Spontaneous
  Country: US (occurrence: US)
  Receive Date: 20200908
  Receipt Date: 20201230
  Transmission Date: 20210113
  Serious: Yes (Life-Threatening, Hospitalization, Disabling, Other)
  Sender: FDA-Public Use
  Company Number: US-JNJFOC-A-NJ2020-206495

PATIENT
  Age: 62 Year
  Sex: Female
  Weight: 61.68 kg

DRUGS (3)
  1. REMODULIN [Suspect]
     Active Substance: TREPROSTINIL
     Indication: PULMONARY ARTERIAL HYPERTENSION
     Route: 065
  2. SILDENAFIL CITRATE. [Suspect]
     Active Substance: SILDENAFIL CITRATE
     Indication: PULMONARY ARTERIAL HYPERTENSION
     Route: 048
  3. OPSUMIT [Suspect]
     Active Substance: MACITENTAN
     Indication: PULMONARY ARTERIAL HYPERTENSION
     Dosage: 10 MG, QD
     Route: 048
     Dates: start: 2020

REACTIONS (10)
  - Sepsis [Recovered/Resolved]
  - Incorrect dose administered [Unknown]
  - Red blood cell count abnormal [Unknown]
  - Hypotension [Unknown]
  - Pulmonary arterial hypertension [Not Recovered/Not Resolved]
  - Hypertension [Unknown]
  - Hypoxia [Not Recovered/Not Resolved]
  - Clostridium difficile colitis [Recovered/Resolved]
  - White blood cell count increased [Recovered/Resolved]
  - Loss of consciousness [Unknown]

NARRATIVE: CASE EVENT DATE: 20200622
